FAERS Safety Report 7680871-6 (Version None)
Quarter: 2011Q3

REPORT INFORMATION
  Report Type: 
  Country: None (occurrence: None)
  Receive Date: 20110812
  Receipt Date: 20110808
  Transmission Date: 20111222
  Serious: Yes (Disabling)
  Sender: FDA-Public Use
  Company Number: US-MERCK-1009USA05567

PATIENT
  Age: 46 Year
  Sex: Female
  Weight: 50 kg

DRUGS (4)
  1. CALCIUM (UNSPECIFIED) [Concomitant]
     Route: 048
  2. FOSAMAX PLUS D [Suspect]
     Indication: MENOPAUSE
     Route: 048
     Dates: start: 20070829, end: 20070801
  3. FOSAMAX [Suspect]
     Indication: OSTEOPENIA
     Route: 048
     Dates: start: 20041216, end: 20070801
  4. FOSAMAX [Suspect]
     Indication: MENOPAUSE
     Route: 048
     Dates: start: 20041216, end: 20070801

REACTIONS (16)
  - INCREASED TENDENCY TO BRUISE [None]
  - OFF LABEL USE [None]
  - TOOTH DISORDER [None]
  - N-TELOPEPTIDE URINE INCREASED [None]
  - JOINT CREPITATION [None]
  - MUSCLE ATROPHY [None]
  - HAEMATURIA [None]
  - DEVICE FAILURE [None]
  - BONE LOSS [None]
  - MENORRHAGIA [None]
  - SYNOVITIS [None]
  - PATELLOFEMORAL PAIN SYNDROME [None]
  - DRUG INEFFECTIVE [None]
  - DYSFUNCTIONAL UTERINE BLEEDING [None]
  - OSTEOPENIA [None]
  - TOOTH DISCOLOURATION [None]
